FAERS Safety Report 5712806-7 (Version None)
Quarter: 2008Q2

REPORT INFORMATION
  Report Type: 
  Country: None (occurrence: None)
  Receive Date: 20080421
  Receipt Date: 20080421
  Transmission Date: 20081010
  Serious: No
  Sender: FDA-Public Use
  Company Number: None

PATIENT
  Age: 41 Year
  Sex: Female
  Weight: 74.8435 kg

DRUGS (2)
  1. BUPROPRION 300 XL TEVA [Suspect]
     Indication: ATTENTION DEFICIT/HYPERACTIVITY DISORDER
     Dosage: 300 XL DAILY PO
     Route: 048
     Dates: start: 20070401, end: 20070408
  2. BUPROPRION 300 XL TEVA [Suspect]
     Indication: DEPRESSION
     Dosage: 300 XL DAILY PO
     Route: 048
     Dates: start: 20070401, end: 20070408

REACTIONS (5)
  - ABDOMINAL DISCOMFORT [None]
  - DYSGEUSIA [None]
  - FEELING ABNORMAL [None]
  - GASTROOESOPHAGEAL REFLUX DISEASE [None]
  - THERAPEUTIC RESPONSE UNEXPECTED WITH DRUG SUBSTITUTION [None]
